FAERS Safety Report 5692685-7 (Version None)
Quarter: 2008Q2

REPORT INFORMATION
  Report Type: 
  Country: None (occurrence: None)
  Receive Date: 20080401
  Receipt Date: 20080313
  Transmission Date: 20081010
  Serious: Yes (Death, Hospitalization)
  Sender: FDA-Public Use
  Company Number: 2008S1004201

PATIENT
  Age: 67 Year
  Sex: Female

DRUGS (3)
  1. AZATHIOPRINE [Suspect]
     Indication: IMMUNOSUPPRESSION
     Dosage: 150 MG; DAILY, 150 MG; DAILY
  2. CYCLOSPORINE [Suspect]
     Indication: IMMUNOSUPPRESSION
     Dosage: 100 MG; DAILY, 100 MG; DAILY
  3. PREDNISONE TAB [Suspect]
     Indication: IMMUNOSUPPRESSION
     Dosage: 5 MG; DAILY, 5 MG, DAILY

REACTIONS (5)
  - EPSTEIN-BARR VIRUS TEST POSITIVE [None]
  - HUMAN HERPESVIRUS 8 INFECTION [None]
  - LYMPHOMA [None]
  - MONONUCLEOSIS HETEROPHILE TEST POSITIVE [None]
  - PLEURAL EFFUSION [None]
